FAERS Safety Report 5750034-X (Version None)
Quarter: 2008Q2

REPORT INFORMATION
  Report Type: 
  Country: None (occurrence: None)
  Receive Date: 20080527
  Receipt Date: 20080519
  Transmission Date: 20081010
  Serious: Yes (Hospitalization)
  Sender: FDA-Public Use
  Company Number: FR-BOEHRINGER INGELHEIM GMBH, GERMANY-2008-BP-04861YA

PATIENT
  Sex: Male

DRUGS (5)
  1. OMIX L.P. [Suspect]
     Route: 048
     Dates: end: 20080215
  2. LIPUR [Suspect]
     Route: 048
     Dates: end: 20080201
  3. BETASERC [Suspect]
     Route: 048
     Dates: end: 20080201
  4. NIOCITRAN [Suspect]
     Route: 048
     Dates: end: 20080201
  5. VASTAREL [Suspect]
     Route: 048
     Dates: end: 20080201

REACTIONS (3)
  - DRUG ERUPTION [None]
  - PRURITUS [None]
  - RASH ERYTHEMATOUS [None]
